FAERS Safety Report 4411744-X (Version None)
Quarter: 2004Q3

REPORT INFORMATION
  Report Type: 
  Country: None (occurrence: None)
  Receive Date: 20040729
  Receipt Date: 20040729
  Transmission Date: 20050211
  Serious: Yes (Death)
  Sender: FDA-Public Use
  Company Number: None

PATIENT
  Age: 65 Year
  Sex: Male

DRUGS (3)
  1. TOSITUMOMAB THERAPEUTIC DOSE CORIXA/GLAXOSMITHKLINE [Suspect]
     Indication: B-CELL LYMPHOMA
     Dosage: 450 MG IV
     Route: 042
     Dates: start: 20040723, end: 20040723
  2. SSKI [Concomitant]
  3. WARFARIN SODIUM [Concomitant]

REACTIONS (2)
  - CARDIO-RESPIRATORY ARREST [None]
  - HYPOTENSION [None]
